FAERS Safety Report 9524842 (Version 1)
Quarter: 2013Q3

REPORT INFORMATION
  Report Type: Spontaneous
  Country: US (occurrence: US)
  Receive Date: 20130916
  Receipt Date: 20130916
  Transmission Date: 20140515
  Serious: No
  Sender: FDA-Public Use
  Company Number: US-B.I. PHARMACEUTICALS,INC./RIDGEFIELD-2013-BI-27699BP

PATIENT
  Sex: Female
  Weight: 64 kg

DRUGS (1)
  1. COMBIVENT [Suspect]
     Indication: PULMONARY FIBROSIS
     Dosage: DOSE STRENGTH: 18 MCG / 103 MCG
     Route: 055
     Dates: start: 2011, end: 201304

REACTIONS (1)
  - Off label use [Not Recovered/Not Resolved]
